FAERS Safety Report 6183261-0 (Version None)
Quarter: 2009Q2

REPORT INFORMATION
  Report Type: 
  Country: None (occurrence: None)
  Receive Date: 20090507
  Receipt Date: 20090428
  Transmission Date: 20091009
  Serious: Yes (Death)
  Sender: FDA-Public Use
  Company Number: US-AMGEN-QUU344874

PATIENT
  Sex: Male

DRUGS (6)
  1. ARANESP [Suspect]
     Indication: RENAL FAILURE CHRONIC
     Dates: start: 20090204
  2. LIPITOR [Concomitant]
  3. INDERAL [Concomitant]
  4. VITAMIN D [Concomitant]
  5. FERROUS SULFATE TAB [Concomitant]
  6. CALCITRIOL [Concomitant]

REACTIONS (1)
  - MULTI-ORGAN FAILURE [None]
